FAERS Safety Report 6511846-8 (Version None)
Quarter: 2009Q4

REPORT INFORMATION
  Report Type: 
  Country: None (occurrence: None)
  Receive Date: 20091222
  Receipt Date: 20091221
  Transmission Date: 20100525
  Serious: Yes (Life-Threatening)
  Sender: FDA-Public Use
  Company Number: GB-WYE-G05189909

PATIENT
  Sex: Male

DRUGS (3)
  1. GEMTUZUMAB OZOGAMICIN [Suspect]
     Indication: ACUTE MYELOID LEUKAEMIA
     Dosage: UNKNOWN
     Dates: start: 20091207, end: 20091211
  2. CLOFARABINE [Suspect]
     Dosage: UNKNOWN
     Dates: start: 20091207, end: 20091211
  3. DAUNORUBICIN [Suspect]
     Dosage: UNKNOWN
     Dates: start: 20091207, end: 20091211

REACTIONS (1)
  - RESPIRATORY FAILURE [None]
